FAERS Safety Report 10042033 (Version 1)
Quarter: 2014Q1

REPORT INFORMATION
  Report Type: Spontaneous
  Country: US (occurrence: US)
  Receive Date: 20140327
  Receipt Date: 20140327
  Transmission Date: 20141002
  Serious: Yes (Other)
  Sender: FDA-Public Use
  Company Number: US-TEVA-471513USA

PATIENT
  Age: 22 Year
  Sex: Female

DRUGS (11)
  1. AZITHROMYCIN [Suspect]
     Indication: MYCOBACTERIUM AVIUM COMPLEX INFECTION
     Route: 065
  2. ETHAMBUTOL [Suspect]
     Indication: MYCOBACTERIUM AVIUM COMPLEX INFECTION
     Route: 065
  3. MOXIFLOXACIN [Suspect]
     Indication: MYCOBACTERIUM AVIUM COMPLEX INFECTION
     Route: 065
  4. RIFABUTIN [Suspect]
     Indication: MYCOBACTERIUM AVIUM COMPLEX INFECTION
     Route: 065
  5. DAPSONE [Suspect]
     Indication: MYCOBACTERIUM AVIUM COMPLEX INFECTION
     Route: 065
  6. TRUVADA [Concomitant]
     Indication: HIV INFECTION
     Route: 065
  7. RALTEGRAVIR [Concomitant]
     Indication: HIV INFECTION
     Route: 065
  8. ETRAVIRINE [Concomitant]
     Indication: HIV INFECTION
     Route: 065
  9. BACTRIM [Concomitant]
     Indication: ANTIFUNGAL PROPHYLAXIS
     Route: 065
  10. FLUCONAZOLE [Concomitant]
     Indication: ANTIFUNGAL PROPHYLAXIS
     Route: 065
  11. ACICLOVIR [Concomitant]
     Indication: HERPES ZOSTER
     Route: 065

REACTIONS (1)
  - Pancytopenia [Unknown]
